FAERS Safety Report 7734547-7 (Version None)
Quarter: 2011Q3

REPORT INFORMATION
  Report Type: 
  Country: None (occurrence: None)
  Receive Date: 20110907
  Receipt Date: 20110819
  Transmission Date: 20111222
  Serious: Yes (Other)
  Sender: FDA-Public Use
  Company Number: JP-GLAXOSMITHKLINE-B0741397A

PATIENT
  Sex: Male

DRUGS (8)
  1. PAXIL [Suspect]
     Dosage: 40MG PER DAY
     Route: 048
     Dates: start: 20101101
  2. ARICEPT [Concomitant]
     Indication: DEMENTIA ALZHEIMER'S TYPE
     Dosage: 5MG PER DAY
     Route: 048
     Dates: start: 20110210
  3. ZOLPIDEM [Concomitant]
     Indication: INSOMNIA
     Dosage: 5MG PER DAY
     Route: 048
     Dates: start: 20110704
  4. PAXIL [Suspect]
     Indication: AFFECTIVE DISORDER
     Dosage: 30MG PER DAY
     Route: 048
     Dates: end: 20101101
  5. CEPHADOL [Concomitant]
     Indication: DIZZINESS
     Dosage: 5MG PER DAY
     Route: 048
  6. PRAMIPEXOLE DIHYDROCHLORIDE [Suspect]
     Indication: PARKINSONISM
     Dosage: 3MG PER DAY
     Route: 048
     Dates: start: 20110210
  7. ISOMENYL [Concomitant]
     Route: 048
  8. METLIGINE [Concomitant]
     Indication: HYPOTENSION
     Dosage: 12MG PER DAY
     Route: 048
     Dates: start: 20101004

REACTIONS (3)
  - DIZZINESS [None]
  - PARKINSONISM [None]
  - EXTRAPYRAMIDAL DISORDER [None]
